FAERS Safety Report 7928557-4 (Version None)
Quarter: 2011Q4

REPORT INFORMATION
  Report Type: 
  Country: None (occurrence: None)
  Receive Date: 20111118
  Receipt Date: 20111114
  Transmission Date: 20120403
  Serious: Yes (Death, Other)
  Sender: FDA-Public Use
  Company Number: US-JNJFOC-20071004272

PATIENT
  Age: 3 Month
  Sex: Male
  Weight: 3.63 kg

DRUGS (7)
  1. DOXYLAMINE SUCCINATE [Suspect]
     Indication: ILL-DEFINED DISORDER
  2. ACETAMINOPHEN [Suspect]
  3. PSEUDOEPHEDRINE HCL [Suspect]
  4. DEXTROMETHORPHAN HYDROBROMIDE [Suspect]
     Indication: ILL-DEFINED DISORDER
  5. NYSTATIN [Concomitant]
     Route: 048
  6. ACETAMINOPHEN [Suspect]
     Indication: ILL-DEFINED DISORDER
  7. PSEUDOEPHEDRINE HCL [Suspect]
     Indication: ILL-DEFINED DISORDER

REACTIONS (3)
  - TOXICITY TO VARIOUS AGENTS [None]
  - HYPOXIC-ISCHAEMIC ENCEPHALOPATHY [None]
  - LOWER LIMB FRACTURE [None]
